FAERS Safety Report 18454025 (Version 1)
Quarter: 2020Q4

REPORT INFORMATION
  Report Type: Spontaneous
  Country: JP (occurrence: JP)
  Receive Date: 20201102
  Receipt Date: 20201102
  Transmission Date: 20210114
  Serious: Yes (Other)
  Sender: FDA-Public Use
  Company Number: JP-BAUSCH-BL-2020-031060

PATIENT
  Age: 3 Decade
  Sex: Female

DRUGS (3)
  1. RINDERON A [Suspect]
     Active Substance: BETAMETHASONE SODIUM PHOSPHATE\NEOMYCIN SULFATE
     Indication: PRODUCT USED FOR UNKNOWN INDICATION
     Route: 047
  2. LOCOID [Suspect]
     Active Substance: HYDROCORTISONE BUTYRATE
     Indication: ECZEMA
     Route: 061
  3. PREDNISOLONE. [Suspect]
     Active Substance: PREDNISOLONE
     Indication: PRODUCT USED FOR UNKNOWN INDICATION
     Route: 065

REACTIONS (1)
  - Glaucoma [Unknown]
